FAERS Safety Report 10397324 (Version 1)
Quarter: 2014Q3

REPORT INFORMATION
  Report Type: Spontaneous
  Country: GB (occurrence: GB)
  Receive Date: 20140820
  Receipt Date: 20140820
  Transmission Date: 20150326
  Serious: Yes (Death, Life-Threatening)
  Sender: FDA-Public Use
  Company Number: GB-BAYER-2014-120431

PATIENT
  Age: 80 Year

DRUGS (7)
  1. DALTEPARIN [Suspect]
     Active Substance: DALTEPARIN
     Indication: THROMBOSIS PROPHYLAXIS
     Dosage: 500 DF, UNK
     Route: 058
     Dates: start: 20131010
  2. IRBESARTAN. [Concomitant]
     Active Substance: IRBESARTAN
     Dosage: 300 MG, UNK
     Route: 048
  3. ALTEPLASE [Concomitant]
     Active Substance: ALTEPLASE
     Indication: ISCHAEMIC STROKE
     Dosage: 56 MG, UNK
     Route: 042
     Dates: start: 20131004, end: 20131004
  4. ACETYLSALICYLIC ACID (} 100 MG) [Suspect]
     Active Substance: ASPIRIN
     Indication: ISCHAEMIC STROKE
     Dosage: 300 MG, UNK
     Route: 048
     Dates: start: 20131007, end: 20131018
  5. DABIGATRAN [Suspect]
     Active Substance: DABIGATRAN
     Indication: ATRIAL FIBRILLATION
     Dosage: 110 MG, UNK
     Route: 048
     Dates: start: 20131016
  6. ATORVASTATIN [Concomitant]
     Active Substance: ATORVASTATIN
     Dosage: 40 MG, UNK
     Route: 048
  7. FRUSEMIDE [Concomitant]
     Active Substance: FUROSEMIDE
     Dosage: 40 MG, UNK
     Route: 048

REACTIONS (1)
  - Haemorrhagic transformation stroke [Fatal]

NARRATIVE: CASE EVENT DATE: 20131019
